FAERS Safety Report 25334886 (Version 2)
Quarter: 2025Q2

REPORT INFORMATION
  Report Type: Spontaneous
  Country: US (occurrence: US)
  Receive Date: 20250520
  Receipt Date: 20250602
  Transmission Date: 20250716
  Serious: Yes (Other)
  Sender: SANOFI AVENTIS
  Company Number: US-SANOFI-02525164

PATIENT
  Age: 62 Year
  Sex: Male

DRUGS (1)
  1. LANTUS SOLOSTAR [Suspect]
     Active Substance: INSULIN GLARGINE
     Indication: Blood glucose increased
     Dosage: 14 IU, BID
     Route: 058

REACTIONS (3)
  - Brain neoplasm [Unknown]
  - Circulatory collapse [Unknown]
  - Off label use [Unknown]

NARRATIVE: CASE EVENT DATE: 20250528
